FAERS Safety Report 11410415 (Version 1)
Quarter: 2015Q3

REPORT INFORMATION
  Report Type: Other
  Country: GB (occurrence: GB)
  Receive Date: 20150824
  Receipt Date: 20150824
  Transmission Date: 20151125
  Serious: Yes (Hospitalization)
  Sender: FDA-Public Use
  Company Number: GB-ASTELLAS-2015US029626

PATIENT
  Age: 71 Year
  Sex: Male

DRUGS (1)
  1. XTANDI [Suspect]
     Active Substance: ENZALUTAMIDE
     Indication: PROSTATE CANCER
     Route: 048
     Dates: start: 201502, end: 201506

REACTIONS (3)
  - Pyoderma gangrenosum [Recovering/Resolving]
  - Vasculitis [Recovered/Resolved]
  - Vasculitic rash [Recovered/Resolved]

NARRATIVE: CASE EVENT DATE: 201506
